FAERS Safety Report 9249006 (Version 1)
Quarter: 2013Q1

REPORT INFORMATION
  Report Type: Spontaneous
  Country: US (occurrence: None)
  Receive Date: 20130305
  Receipt Date: 20130305
  Transmission Date: 20140127
  Serious: Yes (Hospitalization, Other)
  Sender: FDA-Public Use
  Company Number: 163-21880-12061803

PATIENT
  Age: 84 Year
  Sex: Female

DRUGS (5)
  1. REVLIMID [Suspect]
     Indication: PLASMA CELL MYELOMA
     Route: 048
     Dates: start: 20120510, end: 20120604
  2. HYDROCODONE -ACETAMINOPHEN (VICODIN) [Concomitant]
  3. BAYER (ASPIRIN) [Concomitant]
  4. NOVOLIN N (INSULIN HUMAN INJECTION, ISOPHANE) [Concomitant]
  5. LISINOPRIL (LISINOPRIL) [Concomitant]

REACTIONS (1)
  - Deep vein thrombosis [None]
